FAERS Safety Report 19929322 (Version 1)
Quarter: 2021Q4

REPORT INFORMATION
  Report Type: Other
  Country: IN (occurrence: IN)
  Receive Date: 20211007
  Receipt Date: 20211007
  Transmission Date: 20220304
  Serious: Yes (Other)
  Sender: FDA-Public Use
  Company Number: IN-ROCHE-2928245

PATIENT

DRUGS (1)
  1. TOCILIZUMAB [Suspect]
     Active Substance: TOCILIZUMAB
     Indication: Product used for unknown indication
     Route: 065

REACTIONS (7)
  - Pancreatitis [Unknown]
  - Pancreatitis acute [Unknown]
  - Pancreatic failure [Unknown]
  - Pancreatitis necrotising [Unknown]
  - Pancreatitis haemorrhagic [Unknown]
  - Pancreatic toxicity [Unknown]
  - Pancreatolithiasis [Unknown]
